FAERS Safety Report 9384559 (Version 1)
Quarter: 2013Q3

REPORT INFORMATION
  Report Type: Spontaneous
  Country: US (occurrence: US)
  Receive Date: 20130705
  Receipt Date: 20130705
  Transmission Date: 20140515
  Serious: No
  Sender: FDA-Public Use
  Company Number: US-BAYER-2013-080025

PATIENT
  Sex: Female
  Weight: 77 kg

DRUGS (5)
  1. BETASERON [Suspect]
     Dosage: 0.25 MG, QOD
     Route: 058
  2. KLONOPIN [Concomitant]
     Dosage: 1 MG, UNK
  3. ZOLOFT [Concomitant]
     Dosage: 25 MG, UNK
  4. HYDROCHLOROTHIAZIDE W/LOSARTAN [Concomitant]
     Dosage: 100-25
  5. CRESTOR [Concomitant]
     Dosage: 10 MG, UNK

REACTIONS (2)
  - Injection site mass [Unknown]
  - Injection site erythema [Unknown]
